FAERS Safety Report 9246522 (Version 2)
Quarter: 2013Q2

REPORT INFORMATION
  Report Type: Spontaneous
  Country: US (occurrence: US)
  Receive Date: 20130422
  Receipt Date: 20130519
  Transmission Date: 20140414
  Serious: Yes (Other)
  Sender: FDA-Public Use
  Company Number: US-TEVA-399094USA

PATIENT
  Age: 34 Year
  Sex: Male

DRUGS (1)
  1. LAMOTRIGINE [Suspect]
     Indication: ASPERGER^S DISORDER
     Route: 048
     Dates: start: 2013

REACTIONS (3)
  - Asperger^s disorder [Unknown]
  - Drug ineffective [Unknown]
  - Off label use [Unknown]
